FAERS Safety Report 18745930 (Version 1)
Quarter: 2021Q1

REPORT INFORMATION
  Report Type: Report from Study
  Country: KR (occurrence: KR)
  Receive Date: 20210115
  Receipt Date: 20210115
  Transmission Date: 20210419
  Serious: Yes (Death)
  Sender: FDA-Public Use
  Company Number: KR-PFIZER INC-2021010098

PATIENT

DRUGS (3)
  1. GEMCITABINE HYDROCHLORIDE. [Suspect]
     Active Substance: GEMCITABINE HYDROCHLORIDE
     Indication: PANCREATIC CARCINOMA
     Dosage: 1000 MG/M2, CYCLIC (ON DAYS 1 AND 8 EVERY 3 WEEKS)
     Route: 042
  2. TS?1 [Suspect]
     Active Substance: GIMERACIL\OTERACIL\TEGAFUR
     Indication: PANCREATIC CARCINOMA
     Dosage: 30 MG/M2, 2X/DAY, ON DAYS 1?14 OF EACH CYCLE
     Route: 048
  3. ERLOTINIB [Suspect]
     Active Substance: ERLOTINIB
     Indication: PANCREATIC CARCINOMA
     Dosage: 100 MG, 1X/DAY
     Route: 048

REACTIONS (2)
  - Intra-abdominal haemorrhage [Fatal]
  - Tumour rupture [Fatal]
